FAERS Safety Report 10017905 (Version 2)
Quarter: 2014Q1

REPORT INFORMATION
  Report Type: Spontaneous
  Country: US (occurrence: US)
  Receive Date: 20140318
  Receipt Date: 20140318
  Transmission Date: 20141002
  Serious: No
  Sender: FDA-Public Use
  Company Number: US-BRISTOL-MYERS SQUIBB COMPANY-18863019

PATIENT
  Age: 39 Year
  Sex: Female

DRUGS (18)
  1. ERBITUX [Suspect]
     Indication: COLON CANCER
     Dosage: 500MG WEEKLY?02APR,09APR,16AP,23AP,21MY,29MY13,11JUN,18JUN,25JUN?INTER-07MAY13
     Route: 042
     Dates: start: 20130326
  2. COUMADINE [Suspect]
     Indication: DEEP VEIN THROMBOSIS
     Route: 048
  3. FLUOROURACIL [Suspect]
     Indication: COLON CANCER
  4. IRINOTECAN [Suspect]
     Indication: COLON CANCER
  5. LEUCOVORIN [Suspect]
     Indication: COLON CANCER
     Dosage: 8FEB10,22FEB,08MA,22MA,06AP,11MAY,25MAY,08JN,22JN,06JUL10
     Dates: start: 20100125
  6. ELOXATIN [Concomitant]
     Dosage: 180MG:8FEB10,22FEB,08MA,22MA,06AP,11MAY,25MAY,08JN,22JN,06JUL10
     Route: 041
     Dates: start: 20100125
  7. FUROSEMIDE [Concomitant]
     Dosage: TABS
  8. ASPIRIN [Concomitant]
  9. SYNTHROID [Concomitant]
     Dosage: TABS
  10. SPIRONOLACTONE [Concomitant]
     Dosage: TABS
  11. HYDROCODONE + ACETAMINOPHEN [Concomitant]
     Dosage: 1DF= 1 TO 2 TABS
  12. ZOFRAN [Concomitant]
     Indication: NAUSEA
     Dosage: 1DF=TAB?1 TAB/8 HRS
  13. DOXYCYCLINE HYCLATE CAPS 100MG [Concomitant]
     Indication: DERMATITIS ACNEIFORM
     Dosage: 1DF= 1 CAP
  14. VITAMIN E [Concomitant]
  15. DULCOLAX [Concomitant]
     Dosage: FORMULATION-DULCOLAX 10 MG SUPP
  16. MIRALAX [Concomitant]
  17. MILK OF MAGNESIA [Concomitant]
  18. TYLENOL EXTRA STRENGTH [Concomitant]
     Dosage: TABS

REACTIONS (11)
  - Skin fissures [Unknown]
  - Skin exfoliation [Unknown]
  - Constipation [Not Recovered/Not Resolved]
  - Blister [Unknown]
  - Gastric disorder [Unknown]
  - Nausea [Unknown]
  - Pain in extremity [Unknown]
  - Drug dose omission [Unknown]
  - Skin ulcer [Unknown]
  - Contusion [Unknown]
  - Dry skin [Unknown]
